FAERS Safety Report 10877897 (Version 1)
Quarter: 2015Q1

REPORT INFORMATION
  Report Type: Spontaneous
  Country: IT (occurrence: IT)
  Receive Date: 20150302
  Receipt Date: 20150302
  Transmission Date: 20150721
  Serious: Yes (Hospitalization)
  Sender: FDA-Public Use
  Company Number: IT-BAYER-2015-028400

PATIENT
  Age: 87 Year
  Sex: Female

DRUGS (7)
  1. TAVOR [OXYBUTYNIN HYDROCHLORIDE] [Concomitant]
  2. DAKTARIN [Concomitant]
     Active Substance: MICONAZOLE NITRATE
  3. CIPROFLOXACIN. [Suspect]
     Active Substance: CIPROFLOXACIN
     Indication: URINARY TRACT INFECTION
     Dosage: DAILY DOSE 1 G
     Route: 048
     Dates: start: 20131225, end: 20140107
  4. TRITTICO [Concomitant]
     Active Substance: TRAZODONE HYDROCHLORIDE
  5. COUMADIN [Concomitant]
     Active Substance: WARFARIN SODIUM
  6. SIMVASTATINE A [Concomitant]
  7. DELORAZEPAM [Concomitant]
     Active Substance: DELORAZEPAM

REACTIONS (1)
  - Skin lesion [Recovering/Resolving]

NARRATIVE: CASE EVENT DATE: 20140107
